FAERS Safety Report 18062376 (Version 1)
Quarter: 2020Q3

REPORT INFORMATION
  Report Type: Report from Study
  Country: US (occurrence: US)
  Receive Date: 20200723
  Receipt Date: 20200723
  Transmission Date: 20201103
  Serious: Yes (Hospitalization)
  Sender: FDA-Public Use
  Company Number: US-INCYTE CORPORATION-2019IN013095

PATIENT

DRUGS (2)
  1. INCB054828 [Suspect]
     Active Substance: PEMIGATINIB
     Indication: BLADDER CANCER
     Dosage: 9 MILLIGRAM, QD
     Route: 048
     Dates: start: 20190910, end: 20191225
  2. HYDROCODONE/ACETAMINOPHEN [Concomitant]
     Active Substance: ACETAMINOPHEN\HYDROCODONE
     Indication: BACK PAIN
     Dosage: 1 TABLET (10?325) PRN
     Route: 048
     Dates: start: 20190927

REACTIONS (2)
  - Decreased appetite [Not Recovered/Not Resolved]
  - Stomatitis [Recovered/Resolved]

NARRATIVE: CASE EVENT DATE: 20191225
